FAERS Safety Report 25222026 (Version 2)
Quarter: 2025Q2

REPORT INFORMATION
  Report Type: Spontaneous
  Country: FR (occurrence: FR)
  Receive Date: 20250421
  Receipt Date: 20250521
  Transmission Date: 20250717
  Serious: Yes (Hospitalization)
  Sender: MYLAN
  Company Number: None

PATIENT
  Age: 56 Year
  Sex: Male
  Weight: 82 kg

DRUGS (7)
  1. LENALIDOMIDE [Suspect]
     Active Substance: LENALIDOMIDE
     Indication: Primary amyloidosis
     Dosage: 10 MILLIGRAM, QD
     Dates: start: 20250224, end: 20250317
  2. DARZALEX [Suspect]
     Active Substance: DARATUMUMAB
     Indication: Primary amyloidosis
     Dates: start: 20250224, end: 20250317
  3. DEXAMETHASONE ACETATE [Concomitant]
     Active Substance: DEXAMETHASONE ACETATE
     Indication: Primary amyloidosis
     Dosage: 10 MILLIGRAM, QW (7 DAYS)
     Dates: start: 20250224, end: 20250317
  4. VALACYCLOVIR HYDROCHLORIDE [Concomitant]
     Active Substance: VALACYCLOVIR HYDROCHLORIDE
     Indication: Product used for unknown indication
     Dosage: 500 MILLIGRAM, QD
     Dates: start: 20250224
  5. BACTRIM [Concomitant]
     Active Substance: SULFAMETHOXAZOLE\TRIMETHOPRIM
     Indication: Product used for unknown indication
     Dosage: 1 DOSAGE FORM, 3XW (1TAB 3F/WEEK)
     Dates: start: 20250224
  6. CHOLECALCIFEROL [Concomitant]
     Active Substance: CHOLECALCIFEROL
     Indication: Product used for unknown indication
     Dosage: 1 DOSAGE FORM, Q3MONTHS (ORAL SOLUTION IN AMPOULE)
     Dates: start: 20250224
  7. ELIQUIS [Concomitant]
     Active Substance: APIXABAN
     Indication: Product used for unknown indication
     Dosage: 1 DOSAGE FORM, BID (12 HOURS)
     Dates: start: 20250224

REACTIONS (1)
  - Myocarditis [Recovering/Resolving]

NARRATIVE: CASE EVENT DATE: 20250318
